FAERS Safety Report 5689290-5 (Version None)
Quarter: 2008Q1

REPORT INFORMATION
  Report Type: 
  Country: None (occurrence: None)
  Receive Date: 20080331
  Receipt Date: 20080319
  Transmission Date: 20080703
  Serious: Yes (Other)
  Sender: FDA-Public Use
  Company Number: AU-PFIZER INC-2008015766

PATIENT
  Sex: Female
  Weight: 55.1 kg

DRUGS (3)
  1. ZOLOFT [Suspect]
     Indication: ASPERGER'S DISORDER
     Dosage: DAILY DOSE:75MG
     Route: 048
  2. ZOLOFT [Suspect]
     Indication: ANXIETY
  3. ZOLOFT [Suspect]
     Indication: OBSESSIVE-COMPULSIVE DISORDER

REACTIONS (1)
  - DEAFNESS [None]
